FAERS Safety Report 5137825-3 (Version None)
Quarter: 2006Q4

REPORT INFORMATION
  Report Type: 
  Country: None (occurrence: None)
  Receive Date: 20061030
  Receipt Date: 20060118
  Transmission Date: 20070319
  Serious: No
  Sender: FDA-Public Use
  Company Number: US-GLAXOSMITHKLINE-A0590123A

PATIENT
  Age: 15 Year
  Sex: Female
  Weight: 56.8 kg

DRUGS (1)
  1. ADVAIR HFA [Suspect]
     Route: 055

REACTIONS (3)
  - ARRHYTHMIA [None]
  - DIZZINESS [None]
  - TUNNEL VISION [None]
